FAERS Safety Report 8989178 (Version 1)
Quarter: 2012Q4

REPORT INFORMATION
  Report Type: 
  Country: TR (occurrence: TR)
  Receive Date: 20121228
  Receipt Date: 20121228
  Transmission Date: 20130627
  Serious: Yes (Hospitalization, Other)
  Sender: FDA-Public Use
  Company Number: TR-ASTELLAS-2012EU011417

PATIENT
  Age: 46 Year
  Sex: Male
  Weight: 77 kg

DRUGS (4)
  1. PROGRAF [Suspect]
     Indication: TRANSPLANT
     Dosage: 2 UNK, bid
     Route: 048
     Dates: start: 20111129, end: 20120831
  2. CELLCEPT                           /01275102/ [Concomitant]
     Dosage: UNK
     Route: 065
  3. VALCYTE [Concomitant]
     Dosage: UNK
     Route: 065
  4. PREDNOL                            /00049601/ [Concomitant]
     Dosage: UNK
     Route: 065

REACTIONS (1)
  - Encephalitis [Not Recovered/Not Resolved]
